FAERS Safety Report 6847690-1 (Version None)
Quarter: 2010Q3

REPORT INFORMATION
  Report Type: 
  Country: None (occurrence: None)
  Receive Date: 20100716
  Receipt Date: 20100706
  Transmission Date: 20110219
  Serious: Yes (Disabling, Other)
  Sender: FDA-Public Use
  Company Number: PHHY2009TW60825

PATIENT
  Sex: Male

DRUGS (2)
  1. EXJADE [Suspect]
     Dosage: 15 X 125 MG TABS
     Route: 048
  2. EXJADE [Suspect]
     Dosage: 17 X 125 MG TABS
     Route: 048

REACTIONS (8)
  - DEAFNESS UNILATERAL [None]
  - LENTICULAR OPACITIES [None]
  - PRURITUS [None]
  - RASH [None]
  - SKIN EROSION [None]
  - SKIN SWELLING [None]
  - VISION BLURRED [None]
  - VISUAL IMPAIRMENT [None]
